FAERS Safety Report 10070136 (Version 1)
Quarter: 2014Q2

REPORT INFORMATION
  Report Type: Spontaneous
  Country: US (occurrence: None)
  Receive Date: 20140409
  Receipt Date: 20140409
  Transmission Date: 20141212
  Serious: Yes (Other)
  Sender: FDA-Public Use
  Company Number: None

PATIENT
  Age: 56 Year
  Sex: Male
  Weight: 77.57 kg

DRUGS (1)
  1. BEVACIZUMAB [Suspect]
     Indication: COLON CANCER
     Dosage: 5MG/KG EVERY 14 DAYS INTRAVENOUS
     Route: 042
     Dates: start: 20140102, end: 20140102

REACTIONS (3)
  - Erythema [None]
  - Flushing [None]
  - Chest discomfort [None]
